FAERS Safety Report 9928467 (Version 1)
Quarter: 2014Q1

REPORT INFORMATION
  Report Type: Spontaneous
  Country: NO (occurrence: NO)
  Receive Date: 20140227
  Receipt Date: 20140227
  Transmission Date: 20141002
  Serious: Yes (Other)
  Sender: FDA-Public Use
  Company Number: NO-ASTELLAS-2014US001981

PATIENT
  Age: 57 Year
  Sex: Female

DRUGS (1)
  1. TARCEVA [Suspect]
     Indication: LUNG NEOPLASM MALIGNANT
     Dosage: 150 MG, UID/QD
     Route: 065
     Dates: start: 20111124

REACTIONS (6)
  - Wound [Recovering/Resolving]
  - Eczema [Recovering/Resolving]
  - Rash [Recovered/Resolved]
  - Depression [Unknown]
  - Skin disorder [Unknown]
  - Diarrhoea [Unknown]
